FAERS Safety Report 11386139 (Version 1)
Quarter: 2015Q3

REPORT INFORMATION
  Report Type: Spontaneous
  Country: US (occurrence: None)
  Receive Date: 20150813
  Receipt Date: 20150813
  Transmission Date: 20151125
  Serious: Yes (Hospitalization)
  Sender: FDA-Public Use
  Company Number: None

PATIENT
  Age: 19 Year
  Sex: Female
  Weight: 54.3 kg

DRUGS (3)
  1. BLEOMYCIN [Suspect]
     Active Substance: BLEOMYCIN SULFATE
     Dosage: 30 UNITS
     Dates: end: 20150727
  2. ETOPOSIDE (VP-16) [Suspect]
     Active Substance: ETOPOSIDE
     Dates: end: 20150728
  3. CISPLATIN. [Concomitant]
     Active Substance: CISPLATIN
     Dates: end: 20150728

REACTIONS (3)
  - Intestinal obstruction [None]
  - Neutrophil count decreased [None]
  - No therapeutic response [None]

NARRATIVE: CASE EVENT DATE: 20150801
